FAERS Safety Report 16622498 (Version 1)
Quarter: 2019Q3

REPORT INFORMATION
  Report Type: Spontaneous
  Country: DE (occurrence: DE)
  Receive Date: 20190724
  Receipt Date: 20190724
  Transmission Date: 20191004
  Serious: Yes (Hospitalization)
  Sender: FDA-Public Use
  Company Number: DE-TEVA-2019-DE-1080266

PATIENT
  Age: 61 Year
  Sex: Female
  Weight: 63 kg

DRUGS (10)
  1. FLUOROURACIL. [Suspect]
     Active Substance: FLUOROURACIL
     Dosage: 1000 MG/M2, BY SCHEME, LAST ON 08.03.2018, SOLUTION FOR INJECTION/INFUSION
     Route: 042
  2. HYDROCHLOROTHIAZID [Concomitant]
     Active Substance: HYDROCHLOROTHIAZIDE
     Dosage: 25 MG, 1-0-0-0, TABLETS
     Route: 048
  3. OMEPRAZOL [Concomitant]
     Active Substance: OMEPRAZOLE
     Dosage: 20 MG, 1-0-0-0, TABLETS
     Route: 048
  4. RISPERIDON [Concomitant]
     Active Substance: RISPERIDONE
     Dosage: 0.5 MG, 0-0-1-0, TABLETS
     Route: 048
  5. TARGIN 20MG/10MG [Concomitant]
     Active Substance: NALOXONE HYDROCHLORIDE\OXYCODONE HYDROCHLORIDE
     Dosage: 20|10 MG, 1-0-1-0, PROLONGED-RELEASE TABLETS
     Route: 048
  6. CETUXIMAB. [Suspect]
     Active Substance: CETUXIMAB
     Dosage: 400 MG/M2, BY SCHEME, LAST ON 08.03.2018, SOLUTION FOR INJECTION/INFUSION
     Route: 015
  7. METAMIZOL [Concomitant]
     Active Substance: METAMIZOLE SODIUM
     Dosage: 40 GGT, 1-1-1-1, DROPS
     Route: 048
  8. TORASEMID [Concomitant]
     Active Substance: TORSEMIDE
     Dosage: 10 MG, 1-0-0-0, TABLETS
     Route: 048
  9. CISPLATIN. [Suspect]
     Active Substance: CISPLATIN
     Dosage: 100 MG/M2, ACCORDING TO SCHEME, LAST ON 08.03.2018, SOLUTION FOR INJECTION/INFUSION
     Route: 042
  10. ENOXAPARIN [Concomitant]
     Active Substance: ENOXAPARIN
     Dosage: 0.4 ML, 1-0-0-0, SOLUTION FOR INJECTION/INFUSION
     Route: 058

REACTIONS (6)
  - Leukopenia [Unknown]
  - Neutropenia [Unknown]
  - Electrolyte imbalance [Unknown]
  - Diarrhoea [Unknown]
  - Dizziness [Unknown]
  - Pyrexia [Unknown]
